FAERS Safety Report 5517333-8 (Version None)
Quarter: 2007Q4

REPORT INFORMATION
  Report Type: 
  Country: None (occurrence: None)
  Receive Date: 20071114
  Receipt Date: 20071024
  Transmission Date: 20080405
  Serious: No
  Sender: FDA-Public Use
  Company Number: A0689484A

PATIENT
  Age: 69 Year
  Sex: Female

DRUGS (1)
  1. COMMIT [Suspect]

REACTIONS (6)
  - ORAL DISCOMFORT [None]
  - ORAL MUCOSAL BLISTERING [None]
  - PARAESTHESIA ORAL [None]
  - TONGUE BLISTERING [None]
  - TONGUE DISORDER [None]
  - TONGUE ULCERATION [None]
